FAERS Safety Report 7139203-4 (Version None)
Quarter: 2010Q4

REPORT INFORMATION
  Report Type: 
  Country: None (occurrence: None)
  Receive Date: 20101202
  Receipt Date: 20101202
  Transmission Date: 20110411
  Serious: Yes (Other)
  Sender: FDA-Public Use
  Company Number: None

PATIENT
  Age: 7 Year
  Sex: Male
  Weight: 27.2158 kg

DRUGS (1)
  1. CONCERTA [Suspect]
     Indication: ATTENTION DEFICIT/HYPERACTIVITY DISORDER
     Dosage: 1 TIME A DAY PO
     Route: 048
     Dates: start: 20090810, end: 20100501

REACTIONS (4)
  - ABDOMINAL PAIN UPPER [None]
  - ALOPECIA [None]
  - MADAROSIS [None]
  - NO THERAPEUTIC RESPONSE [None]
